FAERS Safety Report 21604363 (Version 1)
Quarter: 2022Q4

REPORT INFORMATION
  Report Type: Spontaneous
  Country: CA (occurrence: CA)
  Receive Date: 20221116
  Receipt Date: 20221116
  Transmission Date: 20230113
  Serious: Yes (Other)
  Sender: FDA-Public Use
  Company Number: CA-ANIPHARMA-2020-CA-001556

PATIENT
  Age: 31 Year
  Sex: Male

DRUGS (3)
  1. CANDESARTAN CILEXETIL [Suspect]
     Active Substance: CANDESARTAN CILEXETIL
     Indication: Hypertension
     Dosage: 24 MG UNK / 16 MG UNK / 16 MG QD
     Route: 048
     Dates: start: 20180211
  2. TOLVAPTAN [Suspect]
     Active Substance: TOLVAPTAN
     Dosage: 45 MG QD / 15 MG QD / 60 MG DAILY
     Route: 048
     Dates: start: 20200626, end: 20200904
  3. PROZAC [Concomitant]
     Active Substance: FLUOXETINE HYDROCHLORIDE
     Route: 065

REACTIONS (11)
  - Alanine aminotransferase increased [Recovering/Resolving]
  - Umbilical hernia [Unknown]
  - Aspartate aminotransferase increased [Recovered/Resolved]
  - Liver function test increased [Recovering/Resolving]
  - Abdominal distension [Unknown]
  - Blood pressure fluctuation [Unknown]
  - Condition aggravated [Not Recovered/Not Resolved]
  - Polydipsia [Unknown]
  - Procedural pain [Unknown]
  - Sluggishness [Unknown]
  - Thirst [Not Recovered/Not Resolved]

NARRATIVE: CASE EVENT DATE: 20190101
